FAERS Safety Report 9653214 (Version 2)
Quarter: 2013Q4

REPORT INFORMATION
  Report Type: Spontaneous
  Country: JP (occurrence: JP)
  Receive Date: 20131029
  Receipt Date: 20131120
  Transmission Date: 20140711
  Serious: Yes (Hospitalization)
  Sender: FDA-Public Use
  Company Number: JP-GLAXOSMITHKLINE-B0936523A

PATIENT
  Age: 6 Decade
  Sex: Female

DRUGS (1)
  1. SERETIDE (50MCG/250MCG) [Suspect]
     Indication: ASTHMA
     Dosage: 500MCG TWICE PER DAY
     Route: 055

REACTIONS (3)
  - Asthma [Recovering/Resolving]
  - Overdose [Unknown]
  - Treatment noncompliance [Unknown]
